FAERS Safety Report 17558958 (Version 1)
Quarter: 2020Q1

REPORT INFORMATION
  Report Type: Report from Study
  Country: None (occurrence: US)
  Receive Date: 20200319
  Receipt Date: 20200319
  Transmission Date: 20200409
  Serious: Yes (Other)
  Sender: FDA-Public Use
  Company Number: US-ABBVIE-20K-163-3326712-00

PATIENT
  Sex: Female

DRUGS (1)
  1. HUMIRA [Suspect]
     Active Substance: ADALIMUMAB
     Indication: RHEUMATOID ARTHRITIS
     Route: 058
     Dates: start: 2013, end: 20200103

REACTIONS (8)
  - Musculoskeletal pain [Unknown]
  - Malaise [Unknown]
  - Pain in extremity [Unknown]
  - Cough [Unknown]
  - Gout [Not Recovered/Not Resolved]
  - Knee arthroplasty [Recovered/Resolved]
  - Meniscus injury [Not Recovered/Not Resolved]
  - Arthralgia [Unknown]

NARRATIVE: CASE EVENT DATE: 2014
